FAERS Safety Report 15863544 (Version 1)
Quarter: 2019Q1

REPORT INFORMATION
  Report Type: Spontaneous
  Country: US (occurrence: US)
  Receive Date: 20190124
  Receipt Date: 20190124
  Transmission Date: 20190417
  Serious: Yes (Other)
  Sender: FDA-Public Use
  Company Number: US-JNJFOC-20190128063

PATIENT
  Age: 55 Year
  Sex: Female

DRUGS (1)
  1. INVOKANA [Suspect]
     Active Substance: CANAGLIFLOZIN
     Indication: TYPE 2 DIABETES MELLITUS
     Route: 048
     Dates: start: 20141223

REACTIONS (4)
  - Osteomyelitis acute [Recovering/Resolving]
  - Skin necrosis [Recovering/Resolving]
  - Toe amputation [Unknown]
  - Polyuria [Unknown]

NARRATIVE: CASE EVENT DATE: 20160627
